FAERS Safety Report 9885839 (Version 5)
Quarter: 2014Q2

REPORT INFORMATION
  Report Type: Report from Study
  Country: GB (occurrence: GB)
  Receive Date: 20140210
  Receipt Date: 20140618
  Transmission Date: 20141212
  Serious: Yes (Life-Threatening, Hospitalization, Other)
  Sender: FDA-Public Use
  Company Number: GB-BRISTOL-MYERS SQUIBB COMPANY-19828573

PATIENT
  Age: 65 Year
  Sex: Female

DRUGS (6)
  1. ABATACEPT SUBQ INJECTION 125MG/ML [Suspect]
     Indication: RHEUMATOID ARTHRITIS
     Route: 058
     Dates: start: 20131122
  2. AMLODIPINE [Concomitant]
  3. PREDNISOLONE [Concomitant]
  4. CALCICHEW D3 [Concomitant]
  5. DENOSUMAB [Concomitant]
  6. OMEPRAZOLE [Concomitant]

REACTIONS (8)
  - Cellulitis [Recovered/Resolved]
  - Fall [Recovered/Resolved]
  - Haematoma [Recovered/Resolved]
  - Renal failure acute [Recovered/Resolved]
  - Joint effusion [Recovered/Resolved]
  - Pneumonia [Unknown]
  - Pain [Unknown]
  - Aphagia [Unknown]
